FAERS Safety Report 8421569-6 (Version None)
Quarter: 2012Q2

REPORT INFORMATION
  Report Type: 
  Country: None (occurrence: None)
  Receive Date: 20120601
  Receipt Date: 20120518
  Transmission Date: 20120825
  Serious: Yes (Other)
  Sender: FDA-Public Use
  Company Number: B0794642A

PATIENT
  Age: 48 Year
  Sex: Female
  Weight: 69.8539 kg

DRUGS (10)
  1. PACLITAXEL [Suspect]
     Dosage: 315 MG;Q2W;IV, 300 MG;Q2W;IV
     Route: 042
     Dates: start: 20110524, end: 20110607
  2. PACLITAXEL [Suspect]
     Dosage: 315 MG;Q2W;IV, 300 MG;Q2W;IV
     Route: 042
     Dates: start: 20110621, end: 20110705
  3. CHLORPHENIRAMINE MALEATE [Suspect]
     Dosage: 10 MG; IV
     Route: 042
  4. PEGFILGRASTIM (NO PREF. NAME) [Suspect]
     Indication: BREAST CANCER
     Dosage: 6 MG; ;SC
     Route: 058
  5. DEXAMETHASONE [Suspect]
     Dosage: 20 MG; ;IV,  4 MG;BID;PO
     Route: 042
  6. GRANISETRON [Suspect]
     Dosage: 1 MG;BID; PO
     Route: 048
  7. GLUCOSE OXIDASE +LACTOPEROXIDASE +LYSOZYME (BIOTENE DRY MOUTH MOU'HWAS [Concomitant]
  8. DOMPERIDONE (NO PREF. NAME) [Suspect]
     Dosage: 20 MG;	;PO
     Route: 048
  9. DOCUSATE [Concomitant]
  10. RANITIDINE HCL [Suspect]
     Dosage: 50 MG;	;IV
     Route: 042

REACTIONS (6)
  - FATIGUE [None]
  - CHEST DISCOMFORT [None]
  - RESPIRATORY DEPTH DECREASED [None]
  - CHEST PAIN [None]
  - DYSPNOEA [None]
  - THROAT TIGHTNESS [None]
